FAERS Safety Report 5732536-5 (Version None)
Quarter: 2008Q2

REPORT INFORMATION
  Report Type: 
  Country: None (occurrence: None)
  Receive Date: 20080508
  Receipt Date: 20080429
  Transmission Date: 20081010
  Serious: Yes (Other)
  Sender: FDA-Public Use
  Company Number: US-GILEAD-2008-0016287

PATIENT
  Sex: Female
  Weight: 113.05 kg

DRUGS (9)
  1. LETAIRIS [Suspect]
     Route: 048
     Dates: start: 20070815
  2. DOXYCYCLINE [Concomitant]
     Route: 048
  3. SINGULAIR [Concomitant]
     Route: 048
  4. ZOCOR [Concomitant]
     Route: 048
  5. LASIX [Concomitant]
     Route: 048
  6. GLIPIZIDE [Concomitant]
     Route: 048
  7. ALBUTEROL [Concomitant]
     Route: 055
  8. NEXIUM [Concomitant]
     Route: 048
  9. ALTACE [Concomitant]
     Route: 048

REACTIONS (2)
  - LOSS OF CONSCIOUSNESS [None]
  - MALAISE [None]
